FAERS Safety Report 18367196 (Version 1)
Quarter: 2020Q4

REPORT INFORMATION
  Report Type: Spontaneous
  Country: HU (occurrence: HU)
  Receive Date: 20201009
  Receipt Date: 20201009
  Transmission Date: 20210114
  Serious: Yes (Death, Other)
  Sender: FDA-Public Use
  Company Number: HU-JNJFOC-A-CH2015-123225

PATIENT
  Age: 27 Month
  Sex: Female

DRUGS (4)
  1. ZAVESCA [Suspect]
     Active Substance: MIGLUSTAT
     Route: 048
  2. ZAVESCA [Suspect]
     Active Substance: MIGLUSTAT
     Route: 048
  3. ZAVESCA [Suspect]
     Active Substance: MIGLUSTAT
     Indication: GM2 GANGLIOSIDOSIS
     Dosage: 100 MG, QD
     Route: 048
     Dates: start: 20150108
  4. PYRIMETHAMINE [Concomitant]
     Active Substance: PYRIMETHAMINE

REACTIONS (3)
  - Death [Fatal]
  - Disease progression [Unknown]
  - Product use in unapproved indication [Unknown]

NARRATIVE: CASE EVENT DATE: 2014
